FAERS Safety Report 9771953 (Version 1)
Quarter: 2013Q4

REPORT INFORMATION
  Report Type: Report from Study
  Country: CA (occurrence: CA)
  Receive Date: 20131219
  Receipt Date: 20131219
  Transmission Date: 20140711
  Serious: Yes (Hospitalization, Other)
  Sender: FDA-Public Use
  Company Number: CA-JNJFOC-20131207909

PATIENT
  Sex: Female
  Weight: 68.04 kg

DRUGS (2)
  1. REMICADE [Suspect]
     Indication: CROHN^S DISEASE
     Route: 042
     Dates: start: 2009, end: 201205
  2. REMICADE [Suspect]
     Indication: CROHN^S DISEASE
     Route: 042
     Dates: start: 201309

REACTIONS (11)
  - Enterostomy [Unknown]
  - Post procedural infection [Unknown]
  - Pelvic fluid collection [Unknown]
  - Portal vein thrombosis [Unknown]
  - Infection [Unknown]
  - Surgery [Unknown]
  - Weight fluctuation [Unknown]
  - Tachycardia [Unknown]
  - Exposure during pregnancy [Recovered/Resolved]
  - Infrequent bowel movements [Unknown]
  - Pyrexia [Unknown]
